FAERS Safety Report 16008036 (Version 5)
Quarter: 2023Q4

REPORT INFORMATION
  Report Type: Spontaneous
  Country: US (occurrence: US)
  Receive Date: 20190226
  Receipt Date: 20231207
  Transmission Date: 20240109
  Serious: No
  Sender: FDA-Public Use
  Company Number: US-PFIZER INC-2019086284

PATIENT
  Age: 64 Year
  Sex: Female

DRUGS (1)
  1. XELJANZ XR [Suspect]
     Active Substance: TOFACITINIB CITRATE
     Indication: Rheumatoid arthritis
     Dosage: 11 MG, DAILY
     Route: 048
     Dates: start: 201811, end: 20190616

REACTIONS (8)
  - Rhinorrhoea [Unknown]
  - Cystitis [Unknown]
  - Sinusitis [Unknown]
  - Urinary tract infection [Unknown]
  - Pain in extremity [Unknown]
  - Abdominal pain upper [Unknown]
  - Back pain [Recovering/Resolving]
  - Accident [Unknown]
